FAERS Safety Report 4740468-4 (Version None)
Quarter: 2005Q3

REPORT INFORMATION
  Report Type: 
  Country: None (occurrence: None)
  Receive Date: 20050805
  Receipt Date: 20050718
  Transmission Date: 20060218
  Serious: Yes (Death)
  Sender: FDA-Public Use
  Company Number: EWC050745158

PATIENT
  Age: 40 Year
  Sex: Male
  Weight: 70 kg

DRUGS (2)
  1. XIGRIS [Suspect]
     Indication: SEPSIS
     Dosage: 24 UG/96 HOUR
     Dates: start: 20050714, end: 20050718
  2. ARTESUNATE [Concomitant]

REACTIONS (1)
  - BRAIN OEDEMA [None]
